FAERS Safety Report 21789476 (Version 2)
Quarter: 2023Q1

REPORT INFORMATION
  Report Type: Report from Study
  Country: US (occurrence: US)
  Receive Date: 20221228
  Receipt Date: 20230130
  Transmission Date: 20230418
  Serious: No
  Sender: FDA-Public Use
  Company Number: US-ABBVIE-4233863

PATIENT
  Age: 26 Year
  Sex: Male
  Weight: 46.719 kg

DRUGS (2)
  1. HUMIRA [Suspect]
     Active Substance: ADALIMUMAB
     Indication: Uveitis
     Dosage: ALL EVENTS WERE STARTED ON AN UNKNOWN DATE IN 2022
     Route: 058
     Dates: start: 20220819
  2. MIRTAZAPINE [Concomitant]
     Active Substance: MIRTAZAPINE
     Indication: Product used for unknown indication

REACTIONS (8)
  - Rash [Recovering/Resolving]
  - Injury associated with device [Unknown]
  - Weight decreased [Unknown]
  - Chest pain [Unknown]
  - Anxiety [Not Recovered/Not Resolved]
  - Contusion [Recovering/Resolving]
  - Peripheral swelling [Recovering/Resolving]
  - Injection site haemorrhage [Unknown]

NARRATIVE: CASE EVENT DATE: 20220902
